FAERS Safety Report 7941669-4 (Version None)
Quarter: 2011Q4

REPORT INFORMATION
  Report Type: 
  Country: None (occurrence: None)
  Receive Date: 20111128
  Receipt Date: 20111128
  Transmission Date: 20120403
  Serious: Yes (Other)
  Sender: FDA-Public Use
  Company Number: None

PATIENT
  Age: 3 Year
  Sex: Male
  Weight: 16.782 kg

DRUGS (2)
  1. SINGULAIR [Suspect]
     Indication: ASTHMA
     Dosage: 1 TABLET
     Route: 048
     Dates: start: 20111005, end: 20111123
  2. SINGULAIR [Suspect]
     Indication: MULTIPLE ALLERGIES
     Dosage: 1 TABLET
     Route: 048
     Dates: start: 20111005, end: 20111123

REACTIONS (9)
  - NIGHTMARE [None]
  - RESTLESSNESS [None]
  - TREMOR [None]
  - FEAR [None]
  - COLD SWEAT [None]
  - CRYING [None]
  - HALLUCINATION, VISUAL [None]
  - INCOHERENT [None]
  - ABNORMAL DREAMS [None]
